FAERS Safety Report 17121494 (Version 1)
Quarter: 2019Q4

REPORT INFORMATION
  Report Type: Spontaneous
  Country: US (occurrence: US)
  Receive Date: 20191205
  Receipt Date: 20191205
  Transmission Date: 20200122
  Serious: Yes (Life-Threatening, Hospitalization, Disabling)
  Sender: FDA-Public Use
  Company Number: None

PATIENT
  Age: 60 Year
  Sex: Female
  Weight: 81 kg

DRUGS (7)
  1. ZINC LOZENGES [Concomitant]
  2. VITAMIN C [Concomitant]
     Active Substance: ASCORBIC ACID
  3. SULFAMETHOXAZOLE-TMP DS 800-160 SUBSTITUTED FOR BACTRIM DS TABLET [Suspect]
     Active Substance: SULFAMETHOXAZOLE\TRIMETHOPRIM
     Indication: PNEUMONIA
     Dosage: ?          QUANTITY:10 TABLET(S);?
     Route: 048
     Dates: start: 20191029, end: 20191205
  4. VITAMIN D3 [Concomitant]
     Active Substance: CHOLECALCIFEROL
  5. CELECOXIB. [Concomitant]
     Active Substance: CELECOXIB
  6. ONE A DAY MULTIVITAMIN WOMES 50+ [Concomitant]
  7. ALPRAZOLAM. [Concomitant]
     Active Substance: ALPRAZOLAM

REACTIONS (4)
  - Spinal fracture [None]
  - Fall [None]
  - Seizure [None]
  - Renal pain [None]

NARRATIVE: CASE EVENT DATE: 20191122
